FAERS Safety Report 9116778 (Version 1)
Quarter: 2013Q1

REPORT INFORMATION
  Report Type: Report from Study
  Country: GB (occurrence: GB)
  Receive Date: 20130225
  Receipt Date: 20130225
  Transmission Date: 20140127
  Serious: Yes (Life-Threatening, Disabling)
  Sender: FDA-Public Use
  Company Number: GB-CELGENEUS-167-21880-13020797

PATIENT
  Age: 72 Year
  Sex: Male

DRUGS (3)
  1. REVLIMID [Suspect]
     Indication: PLASMA CELL MYELOMA
     Route: 048
     Dates: start: 20120502
  2. REVLIMID [Suspect]
     Route: 048
     Dates: end: 20120801
  3. DEXAMETHASONE [Concomitant]
     Indication: PLASMA CELL MYELOMA
     Route: 065
     Dates: start: 20120502, end: 20120801

REACTIONS (5)
  - No therapeutic response [Unknown]
  - Rash [Recovered/Resolved]
  - Fatigue [Recovered/Resolved]
  - Headache [Recovered/Resolved]
  - Treatment noncompliance [Unknown]
